FAERS Safety Report 9720056 (Version 1)
Quarter: 2013Q4

REPORT INFORMATION
  Report Type: Spontaneous
  Country: ES (occurrence: ES)
  Receive Date: 20131128
  Receipt Date: 20131128
  Transmission Date: 20140711
  Serious: Yes (Hospitalization, Other)
  Sender: FDA-Public Use
  Company Number: ES-009507513-1311ESP010323

PATIENT
  Age: 73 Year
  Sex: Female

DRUGS (5)
  1. FOSAMAX 10MG [Suspect]
     Dosage: 10 MG, QD
     Route: 048
     Dates: start: 199610, end: 200205
  2. FOSAMAX SEMANAL 70 MG [Suspect]
     Dosage: 70 MG, QW
     Route: 048
     Dates: start: 200206
  3. CALCIUM GLUCONATE [Concomitant]
     Dosage: 2 DF, QD
     Route: 048
     Dates: start: 199610
  4. CALCIUM CARBONATE [Concomitant]
     Dosage: 875 MG, QD
     Route: 048
     Dates: start: 199610
  5. VITAMIN D (UNSPECIFIED) [Concomitant]

REACTIONS (4)
  - Femur fracture [Recovered/Resolved]
  - Surgery [Recovered/Resolved]
  - Intramedullary rod insertion [Recovered/Resolved]
  - Osteolysis [Recovered/Resolved]
